FAERS Safety Report 14817626 (Version 1)
Quarter: 2018Q2

REPORT INFORMATION
  Report Type: Spontaneous
  Country: US (occurrence: US)
  Receive Date: 20180426
  Receipt Date: 20180426
  Transmission Date: 20180711
  Serious: Yes (Other)
  Sender: FDA-Public Use
  Company Number: US-ABBVIE-18P-163-2330693-00

PATIENT
  Age: 30 Year
  Sex: Female

DRUGS (1)
  1. MAVYRET [Suspect]
     Active Substance: GLECAPREVIR\PIBRENTASVIR
     Indication: PRODUCT USED FOR UNKNOWN INDICATION
     Route: 065

REACTIONS (4)
  - Concussion [Recovering/Resolving]
  - Head injury [Unknown]
  - Loss of consciousness [Recovered/Resolved]
  - Laceration [Recovering/Resolving]

NARRATIVE: CASE EVENT DATE: 20180418
